FAERS Safety Report 12271144 (Version 1)
Quarter: 2016Q2

REPORT INFORMATION
  Report Type: Spontaneous
  Country: US (occurrence: US)
  Receive Date: 20160415
  Receipt Date: 20160415
  Transmission Date: 20160815
  Serious: No
  Sender: FDA-Public Use
  Company Number: US-PFM-US-2016-0850

PATIENT
  Age: 3 Month
  Sex: Female
  Weight: 6.1 kg

DRUGS (3)
  1. TIMOLOL. [Suspect]
     Active Substance: TIMOLOL
     Indication: HAEMANGIOMA
     Dosage: 1 DROPS, QD (1/DAY) IN THE EVENING
     Route: 061
     Dates: start: 20151221
  2. TIMOLOL. [Suspect]
     Active Substance: TIMOLOL
     Dosage: 1 DROPS, QD (1/DAY)
     Route: 061
     Dates: start: 20160118
  3. HEMANGEOL [Suspect]
     Active Substance: PROPRANOLOL HYDROCHLORIDE
     Indication: HAEMANGIOMA
     Dosage: 0.8 ML, QD (1/DAY) IN THE MORNING
     Route: 048
     Dates: start: 20151221, end: 201601

REACTIONS (5)
  - Sleep disorder [Recovered/Resolved]
  - Diarrhoea [Recovered/Resolved]
  - Decreased appetite [Recovered/Resolved]
  - Gastrooesophageal reflux disease [Recovered/Resolved]
  - Restlessness [None]

NARRATIVE: CASE EVENT DATE: 201512
